FAERS Safety Report 15276535 (Version 1)
Quarter: 2018Q3

REPORT INFORMATION
  Report Type: Report from Study
  Country: CA (occurrence: CA)
  Receive Date: 20180814
  Receipt Date: 20180814
  Transmission Date: 20181010
  Serious: Yes (Other)
  Sender: FDA-Public Use
  Company Number: CA-GLAXOSMITHKLINE-CA2018GSK146488

PATIENT
  Age: 49 Year
  Sex: Male

DRUGS (1)
  1. MEPOLIZUMAB [Suspect]
     Active Substance: MEPOLIZUMAB
     Indication: ASTHMA
     Dosage: 100 MG, Z(MONTHALY)
     Route: 042

REACTIONS (7)
  - Malaise [Unknown]
  - Ill-defined disorder [Unknown]
  - Seizure [Unknown]
  - Ear haemorrhage [Unknown]
  - Migraine [Unknown]
  - Muscle twitching [Unknown]
  - Disturbance in attention [Unknown]

NARRATIVE: CASE EVENT DATE: 20180721
